FAERS Safety Report 12860965 (Version 1)
Quarter: 2016Q4

REPORT INFORMATION
  Report Type: Spontaneous
  Country: CZ (occurrence: CZ)
  Receive Date: 20161019
  Receipt Date: 20161019
  Transmission Date: 20170207
  Serious: Yes (Other)
  Sender: FDA-Public Use
  Company Number: CZ-IMPAX LABORATORIES, INC-2016-IPXL-01383

PATIENT
  Sex: Male

DRUGS (2)
  1. DESMOPRESSIN ACETATE IR [Suspect]
     Active Substance: DESMOPRESSIN ACETATE
     Indication: POLYDIPSIA
  2. DESMOPRESSIN ACETATE IR [Suspect]
     Active Substance: DESMOPRESSIN ACETATE
     Indication: POLYURIA
     Dosage: UNK
     Route: 065

REACTIONS (5)
  - Water intoxication [Unknown]
  - Generalised tonic-clonic seizure [Unknown]
  - Hyponatraemia [Unknown]
  - Hyponatraemic encephalopathy [Unknown]
  - Altered state of consciousness [Unknown]
